FAERS Safety Report 6433433-2 (Version None)
Quarter: 2009Q4

REPORT INFORMATION
  Report Type: 
  Country: None (occurrence: None)
  Receive Date: 20091106
  Receipt Date: 20091106
  Transmission Date: 20100525
  Serious: Yes (Other)
  Sender: FDA-Public Use
  Company Number: None

PATIENT
  Sex: Female
  Weight: 81.6475 kg

DRUGS (1)
  1. IMPLANON [Suspect]
     Indication: CONTRACEPTION
     Dosage: 68MG INSERTION SUBDERMAL
     Route: 059
     Dates: start: 20090910, end: 20090915

REACTIONS (2)
  - IMPLANT SITE PRURITUS [None]
  - MEDICAL DEVICE COMPLICATION [None]
